FAERS Safety Report 8942143 (Version 1)
Quarter: 2012Q4

REPORT INFORMATION
  Report Type: 
  Country: DE (occurrence: DE)
  Receive Date: 20121130
  Receipt Date: 20121130
  Transmission Date: 20130627
  Serious: Yes (Other)
  Sender: FDA-Public Use
  Company Number: DE-GLAXOSMITHKLINE-D0077641A

PATIENT

DRUGS (1)
  1. ARIXTRA [Suspect]
     Dosage: 2.5MG Unknown
     Route: 065

REACTIONS (1)
  - Haemorrhagic diathesis [Unknown]
